FAERS Safety Report 5528339-7 (Version None)
Quarter: 2007Q4

REPORT INFORMATION
  Report Type: 
  Country: None (occurrence: None)
  Receive Date: 20071121
  Receipt Date: 20071113
  Transmission Date: 20080405
  Serious: Yes (Life-Threatening)
  Sender: FDA-Public Use
  Company Number: 2007US002180

PATIENT
  Age: 78 Year
  Sex: Male

DRUGS (13)
  1. ADENOSCAN [Suspect]
     Indication: SCAN MYOCARDIAL PERFUSION
     Dosage: 41 MG, IV NOS
     Route: 042
     Dates: start: 20070726, end: 20070726
  2. DIPYRIDAMOLE [Suspect]
     Indication: GLOMERULONEPHRITIS CHRONIC
     Dosage: 300 MG, UID/QD, ORAL
     Route: 048
  3. ISOSORBIDE MONONITRATE [Concomitant]
  4. MEXILETINE HYDROCHLORIDE (MEXILETINE HYDROCHLORIDE) [Concomitant]
  5. TICLOPIDINE (TICLOPIDINE HYDROCHLORIDE) [Concomitant]
  6. NICORANDIL (NICORANDIL) [Concomitant]
  7. CARVEDILOL [Concomitant]
  8. ASPIRIN [Concomitant]
  9. METILDIGOXIN (METILDIGOXIN) [Concomitant]
  10. LOSARTAN POTASSIUM [Concomitant]
  11. FUROSEMIDE (FUROSEMIDE SODIUM) [Concomitant]
  12. ACARBOSE [Concomitant]
  13. NITROGLYCERIN [Concomitant]

REACTIONS (6)
  - ATRIOVENTRICULAR BLOCK SECOND DEGREE [None]
  - BRADYCARDIA [None]
  - DRUG INTERACTION [None]
  - FEELING ABNORMAL [None]
  - LOSS OF CONSCIOUSNESS [None]
  - MALAISE [None]
